FAERS Safety Report 5717895-1 (Version None)
Quarter: 2008Q2

REPORT INFORMATION
  Report Type: 
  Country: None (occurrence: None)
  Receive Date: 20080425
  Receipt Date: 20080416
  Transmission Date: 20081010
  Serious: Yes (Hospitalization)
  Sender: FDA-Public Use
  Company Number: ES-ABBOTT-08P-144-0434899-00

PATIENT
  Sex: Female

DRUGS (7)
  1. HUMIRA [Suspect]
     Indication: RHEUMATOID ARTHRITIS
     Route: 058
     Dates: start: 20041124
  2. PARACETAMOL [Concomitant]
     Indication: PAIN
     Dates: start: 20070301
  3. URSODIOL [Concomitant]
     Indication: HEPATIC CIRRHOSIS
     Dates: start: 20070901
  4. DESIPRAMINE HYDROCHLORIDE [Concomitant]
     Indication: PROPHYLAXIS AGAINST GASTROINTESTINAL ULCER
     Dates: start: 19940101
  5. ACESISTEM [Concomitant]
     Indication: HYPERTENSION
     Dosage: 20 MG/125 MG
     Dates: start: 20050101
  6. LORMETAZEPAM [Concomitant]
     Indication: INSOMNIA
     Dates: start: 20070901
  7. ALPRAZOLAM [Concomitant]
     Indication: ANXIETY
     Dates: start: 20071101

REACTIONS (1)
  - BILIARY CIRRHOSIS PRIMARY [None]
